FAERS Safety Report 15345047 (Version 1)
Quarter: 2018Q3

REPORT INFORMATION
  Report Type: Spontaneous
  Country: BR (occurrence: BR)
  Receive Date: 20180903
  Receipt Date: 20180903
  Transmission Date: 20181010
  Serious: Yes (Other)
  Sender: FDA-Public Use
  Company Number: PHHY2018BR081761

PATIENT
  Age: 52 Year
  Sex: Male

DRUGS (6)
  1. L?ASCORBIC ACID [Concomitant]
     Indication: INFLUENZA
     Route: 065
  2. NIMESULIDE [Suspect]
     Active Substance: NIMESULIDE
     Indication: ERYTHEMA MULTIFORME
     Route: 065
  3. ACETAMINOPHEN. [Concomitant]
     Active Substance: ACETAMINOPHEN
     Indication: INFLUENZA
     Route: 065
  4. PHENYLEPHRINE HYDROCHLORIDE. [Concomitant]
     Active Substance: PHENYLEPHRINE HYDROCHLORIDE
     Indication: INFLUENZA
     Route: 065
  5. DIMETHINDENE MALEATE [Concomitant]
     Active Substance: DIMETHINDENE MALEATE
     Indication: INFLUENZA
     Route: 065
  6. AMOXICILLIN+CLAVULANIC ACID [Suspect]
     Active Substance: AMOXICILLIN\CLAVULANIC ACID
     Indication: ERYTHEMA MULTIFORME
     Route: 065

REACTIONS (3)
  - Erythema multiforme [Recovered/Resolved]
  - Dermatitis bullous [Recovered/Resolved]
  - Product use in unapproved indication [Unknown]
